FAERS Safety Report 4846216-1 (Version None)
Quarter: 2005Q4

REPORT INFORMATION
  Report Type: 
  Country: None (occurrence: None)
  Receive Date: 20051130
  Receipt Date: 20051116
  Transmission Date: 20060501
  Serious: Yes (Death)
  Sender: FDA-Public Use
  Company Number: 107381ISR

PATIENT
  Age: 51 Year
  Sex: Female

DRUGS (5)
  1. METHOTREXATE [Suspect]
     Indication: BREAST CANCER METASTATIC
     Dosage: 65 MILLIGRAM INTRAVENOUS NOS
     Route: 042
     Dates: start: 20050503, end: 20050524
  2. CYCLOPHOSPHAMIDE [Suspect]
     Indication: BREAST CANCER
     Dosage: 1 GRAM, INTRAVENOUS NOS
     Route: 042
     Dates: start: 20050524, end: 20050524
  3. FLUOROURACIL [Suspect]
     Indication: BREAST CANCER
     Dosage: 1 GRAM, INTRAVENOUS NOS
     Route: 042
     Dates: start: 20050524, end: 20050524
  4. CAPTOPRIL [Concomitant]
  5. PROPRANOLOL [Concomitant]

REACTIONS (4)
  - CHEST PAIN [None]
  - CONVULSION [None]
  - DYSPNOEA [None]
  - MALAISE [None]
